FAERS Safety Report 8766612 (Version 2)
Quarter: 2012Q4

REPORT INFORMATION
  Report Type: 
  Country: BR (occurrence: BR)
  Receive Date: 20120904
  Receipt Date: 20121003
  Transmission Date: 20130627
  Serious: Yes (Death, Hospitalization, Other)
  Sender: FDA-Public Use
  Company Number: PHHY2012BR076463

PATIENT
  Sex: Male
  Weight: 70 kg

DRUGS (4)
  1. FORASEQ [Suspect]
     Indication: EMPHYSEMA
     Dosage: 1 DF, BID
  2. ATROVENT [Concomitant]
     Dosage: UNK UKN, UNK
  3. BEROTEC [Concomitant]
     Dosage: UNK UKN, UNK
  4. BAMIFIX [Concomitant]
     Dosage: UNK UKN, UNK

REACTIONS (4)
  - Emphysema [Fatal]
  - Dyspnoea [Fatal]
  - Glaucoma [Unknown]
  - Visual impairment [Unknown]
